FAERS Safety Report 23655217 (Version 1)
Quarter: 2024Q1

REPORT INFORMATION
  Report Type: Spontaneous
  Country: US (occurrence: US)
  Receive Date: 20240320
  Receipt Date: 20240320
  Transmission Date: 20240410
  Serious: Yes (Other)
  Sender: FDA-Public Use
  Company Number: US-GILEAD-2024-0666450

PATIENT

DRUGS (1)
  1. YESCARTA [Suspect]
     Active Substance: AXICABTAGENE CILOLEUCEL
     Indication: Neoplasm malignant
     Route: 065

REACTIONS (4)
  - Delirium [Unknown]
  - Pyrexia [Unknown]
  - Weight decreased [Unknown]
  - Dysgraphia [Unknown]
